FAERS Safety Report 6194773-8 (Version None)
Quarter: 2009Q2

REPORT INFORMATION
  Report Type: 
  Country: None (occurrence: None)
  Receive Date: 20090515
  Receipt Date: 20090515
  Transmission Date: 20091009
  Serious: No
  Sender: FDA-Public Use
  Company Number: None

PATIENT
  Sex: Female
  Weight: 53.978 kg

DRUGS (1)
  1. CLONAZEPAM [Suspect]
     Indication: ANXIETY
     Dosage: QTY 2MG PO
     Route: 048
     Dates: start: 20090310, end: 20090514

REACTIONS (4)
  - ABDOMINAL DISTENSION [None]
  - ABDOMINAL WALL DISORDER [None]
  - MALAISE [None]
  - PRODUCT SUBSTITUTION ISSUE [None]
